FAERS Safety Report 17005877 (Version 2)
Quarter: 2025Q2

REPORT INFORMATION
  Report Type: Spontaneous
  Country: IT (occurrence: IT)
  Receive Date: 20191107
  Receipt Date: 20250611
  Transmission Date: 20250716
  Serious: Yes (Hospitalization)
  Sender: MYLAN
  Company Number: IT-ACRAF SPA-2019-019420

PATIENT
  Age: 76 Year
  Sex: Male

DRUGS (4)
  1. IMATINIB [Interacting]
     Active Substance: IMATINIB
     Indication: Chronic myeloid leukaemia
  2. ACETAMINOPHEN [Interacting]
     Active Substance: ACETAMINOPHEN
     Indication: Sciatica
  3. EDOXABAN [Concomitant]
     Active Substance: EDOXABAN
     Indication: Anticoagulant therapy
     Dosage: 30 MILLIGRAM, QD
  4. EDOXABAN [Concomitant]
     Active Substance: EDOXABAN

REACTIONS (2)
  - Haematochezia [Unknown]
  - Drug interaction [Unknown]
